FAERS Safety Report 7346887-4 (Version None)
Quarter: 2011Q1

REPORT INFORMATION
  Report Type: 
  Country: None (occurrence: None)
  Receive Date: 20110311
  Receipt Date: 20110303
  Transmission Date: 20110831
  Serious: Yes (Other)
  Sender: FDA-Public Use
  Company Number: DK-JNJFOC-20110301349

PATIENT
  Age: 29 Year
  Sex: Female

DRUGS (2)
  1. RISPERDAL [Suspect]
     Indication: AFFECTIVE DISORDER
     Route: 048
  2. RISPERDAL [Suspect]
     Route: 048

REACTIONS (4)
  - HERPES VIRUS INFECTION [None]
  - INFLUENZA [None]
  - TONSILLAR HYPERTROPHY [None]
  - ABSCESS [None]
